FAERS Safety Report 9456645 (Version 3)
Quarter: 2013Q3

REPORT INFORMATION
  Report Type: Spontaneous
  Country: JP (occurrence: JP)
  Receive Date: 20130813
  Receipt Date: 20130909
  Transmission Date: 20140515
  Serious: Yes (Death)
  Sender: FDA-Public Use
  Company Number: JP-B.I. PHARMACEUTICALS,INC./RIDGEFIELD-2013-BI-24336NB

PATIENT
  Age: 72 Year
  Sex: Female

DRUGS (8)
  1. TRAZENTA [Suspect]
     Indication: DIABETES MELLITUS
     Dosage: 5 MG
     Route: 048
     Dates: start: 20130613, end: 20130716
  2. BAYASPIRIN [Concomitant]
     Indication: ANGINA PECTORIS
     Dosage: 100 MG
     Route: 048
     Dates: start: 2009, end: 20130716
  3. LIVALO [Concomitant]
     Indication: HYPERLIPIDAEMIA
     Dosage: 1 MG
     Route: 048
     Dates: start: 2009, end: 20130716
  4. ARTIST [Concomitant]
     Indication: HYPERTENSION
     Dosage: 2.5 MG
     Route: 048
     Dates: start: 2009, end: 20130716
  5. CALTAN OD [Concomitant]
     Indication: HYPERPHOSPHATAEMIA
     Dosage: 3 G
     Route: 048
     Dates: start: 2009, end: 20130716
  6. KIKLIN [Concomitant]
     Indication: HYPERPHOSPHATAEMIA
     Dosage: 3 G
     Route: 048
     Dates: start: 20130627, end: 20130716
  7. DOPS [Concomitant]
     Indication: PROCEDURAL HYPOTENSION
     Dosage: 200 MG
     Route: 048
     Dates: start: 2009, end: 20130716
  8. METROC [Concomitant]
     Indication: PROCEDURAL HYPOTENSION
     Dosage: 10 MG
     Route: 048
     Dates: start: 2009, end: 20130716

REACTIONS (1)
  - Myocardial infarction [Fatal]
